FAERS Safety Report 9715167 (Version 2)
Quarter: 2013Q4

REPORT INFORMATION
  Report Type: Spontaneous
  Country: US (occurrence: US)
  Receive Date: 20131126
  Receipt Date: 20131204
  Transmission Date: 20140711
  Serious: Yes (Other)
  Sender: FDA-Public Use
  Company Number: US-TEVA-446670USA

PATIENT
  Age: 63 Year
  Sex: Male

DRUGS (1)
  1. COPAXONE [Suspect]
     Indication: MULTIPLE SCLEROSIS
     Dates: start: 20061022

REACTIONS (4)
  - Multiple sclerosis relapse [Not Recovered/Not Resolved]
  - Balance disorder [Recovering/Resolving]
  - Hypoaesthesia [Not Recovered/Not Resolved]
  - Nuclear magnetic resonance imaging abnormal [Unknown]
